FAERS Safety Report 20708998 (Version 2)
Quarter: 2022Q2

REPORT INFORMATION
  Report Type: Report from Study
  Country: US (occurrence: US)
  Receive Date: 20220414
  Receipt Date: 20220502
  Transmission Date: 20220721
  Serious: Yes (Other)
  Sender: FDA-Public Use
  Company Number: US-INSMED, INC.-2022-00928-US

PATIENT
  Sex: Female

DRUGS (1)
  1. ARIKAYCE [Suspect]
     Active Substance: AMIKACIN
     Indication: Mycobacterium avium complex infection
     Dosage: 590 MILLIGRAM, QD
     Route: 055
     Dates: start: 20220331, end: 20220401

REACTIONS (7)
  - Choking [Recovered/Resolved]
  - Throat tightness [Recovered/Resolved]
  - Dyspnoea [Recovered/Resolved]
  - Sinus congestion [Recovered/Resolved]
  - Oropharyngeal pain [Recovered/Resolved]
  - Adverse drug reaction [Unknown]
  - Malaise [Unknown]

NARRATIVE: CASE EVENT DATE: 20220101
